FAERS Safety Report 16877556 (Version 1)
Quarter: 2019Q4

REPORT INFORMATION
  Report Type: Spontaneous
  Country: US (occurrence: US)
  Receive Date: 20191002
  Receipt Date: 20191002
  Transmission Date: 20200122
  Serious: Yes (Hospitalization, Other)
  Sender: FDA-Public Use
  Company Number: None

PATIENT
  Age: 72 Year
  Sex: Male
  Weight: 72 kg

DRUGS (10)
  1. PROPOFOL 200MG [Concomitant]
     Dates: start: 20181114, end: 20181114
  2. KETAMINE 150MG [Concomitant]
     Dates: start: 20181114, end: 20181114
  3. FENTANYL 100 MCG [Concomitant]
     Active Substance: FENTANYL
     Dates: start: 20181114, end: 20181114
  4. GABAPENTIN 300MG [Concomitant]
     Active Substance: GABAPENTIN
     Dates: start: 20181114, end: 20181114
  5. CELECOXIB 200MG [Concomitant]
     Active Substance: CELECOXIB
     Dates: start: 20181114, end: 20181114
  6. LIDOCAINE. [Suspect]
     Active Substance: LIDOCAINE
     Indication: POSTOPERATIVE ANALGESIA
     Dosage: ?          OTHER FREQUENCY:0.75 MG/MIN;?
     Route: 041
     Dates: start: 20181114, end: 20181114
  7. ACETAMINOPHEN 1G [Concomitant]
     Dates: start: 20181114, end: 20181114
  8. DEXAMETHASONE 8MG [Concomitant]
     Dates: start: 20181114, end: 20181114
  9. MIDAZOLAM 2MG [Concomitant]
     Dates: start: 20181114, end: 20181114
  10. VANCOMYCIN 1G [Concomitant]
     Dates: start: 20181114, end: 20181114

REACTIONS (2)
  - Hallucination, visual [None]
  - Vision blurred [None]

NARRATIVE: CASE EVENT DATE: 20181114
